FAERS Safety Report 13626364 (Version 2)
Quarter: 2018Q1

REPORT INFORMATION
  Report Type: Spontaneous
  Country: US (occurrence: US)
  Receive Date: 20170607
  Receipt Date: 20180118
  Transmission Date: 20180508
  Serious: No
  Sender: FDA-Public Use
  Company Number: US-JNJFOC-20170416697

PATIENT
  Age: 12 Year
  Sex: Male

DRUGS (4)
  1. RISPERDAL [Suspect]
     Active Substance: RISPERIDONE
     Indication: AGGRESSION
     Dosage: V1: VARYING DOSES OF 0.5 MG, 1 MG, 1.5 MG AND VARYING FREQUENCIES .
     Route: 048
     Dates: start: 20000124, end: 20081029
  2. RISPERDAL [Suspect]
     Active Substance: RISPERIDONE
     Indication: ATTENTION DEFICIT/HYPERACTIVITY DISORDER
     Dosage: V1: VARYING DOSES OF 0.5 MG, 1 MG, 1.5 MG AND VARYING FREQUENCIES .
     Route: 048
     Dates: start: 20000124, end: 20081029
  3. RISPERDAL [Suspect]
     Active Substance: RISPERIDONE
     Indication: INTELLECTUAL DISABILITY
     Dosage: V1: VARYING DOSES OF 0.5 MG, 1 MG, 1.5 MG AND VARYING FREQUENCIES .
     Route: 048
     Dates: start: 20000124, end: 20081029
  4. RISPERDAL [Suspect]
     Active Substance: RISPERIDONE
     Indication: AUTISM SPECTRUM DISORDER
     Dosage: V1: VARYING DOSES OF 0.5 MG, 1 MG, 1.5 MG AND VARYING FREQUENCIES .
     Route: 048
     Dates: start: 20000124, end: 20081029

REACTIONS (3)
  - Musculoskeletal stiffness [Not Recovered/Not Resolved]
  - Gynaecomastia [Unknown]
  - Emotional disorder [Unknown]

NARRATIVE: CASE EVENT DATE: 200101
